FAERS Safety Report 5841864-4 (Version None)
Quarter: 2008Q3

REPORT INFORMATION
  Report Type: 
  Country: None (occurrence: None)
  Receive Date: 20080811
  Receipt Date: 20080811
  Transmission Date: 20090109
  Serious: Yes (Disabling)
  Sender: FDA-Public Use
  Company Number: None

PATIENT
  Age: 73 Year
  Sex: Female
  Weight: 46.7205 kg

DRUGS (1)
  1. LEVAQUIN [Suspect]
     Indication: SINUSITIS
     Dosage: 10 DAYS 1 PER DAY PO
     Route: 048
     Dates: start: 20080717, end: 20080725

REACTIONS (2)
  - JOINT RANGE OF MOTION DECREASED [None]
  - MUSCULOSKELETAL PAIN [None]
